FAERS Safety Report 23666662 (Version 1)
Quarter: 2024Q1

REPORT INFORMATION
  Report Type: Spontaneous
  Country: US (occurrence: US)
  Receive Date: 20240325
  Receipt Date: 20240325
  Transmission Date: 20240410
  Serious: Yes (Other)
  Sender: FDA-Public Use
  Company Number: US-APIL-2310340US

PATIENT
  Sex: Male
  Weight: 86 kg

DRUGS (3)
  1. COMBIGAN [Suspect]
     Active Substance: BRIMONIDINE TARTRATE\TIMOLOL MALEATE
     Indication: Glaucoma
     Route: 047
  2. BRIMONIDINE TARTRATE [Suspect]
     Active Substance: BRIMONIDINE TARTRATE
     Indication: Glaucoma
     Dosage: BID, MORNING AND EVENING?FORM STRENGTH: 0.2 PERCENT
     Route: 061
  3. LATANOPROST [Concomitant]
     Active Substance: LATANOPROST
     Indication: Open angle glaucoma
     Dosage: QHS OU

REACTIONS (10)
  - Cataract [Unknown]
  - Foreign body sensation in eyes [Recovered/Resolved]
  - Eye irritation [Unknown]
  - Ocular hyperaemia [Recovered/Resolved]
  - Vitreous floaters [Not Recovered/Not Resolved]
  - Dry eye [Not Recovered/Not Resolved]
  - Intraocular pressure increased [Unknown]
  - Vision blurred [Unknown]
  - Glaucoma [Not Recovered/Not Resolved]
  - Foreign body sensation in eyes [Unknown]

NARRATIVE: CASE EVENT DATE: 20000101
